FAERS Safety Report 24615434 (Version 5)
Quarter: 2025Q1

REPORT INFORMATION
  Report Type: Spontaneous
  Country: US (occurrence: US)
  Receive Date: 20241113
  Receipt Date: 20250228
  Transmission Date: 20250409
  Serious: Yes (Other)
  Sender: SANOFI AVENTIS
  Company Number: US-SA-2024SA325325

PATIENT
  Sex: Female
  Weight: 83.64 kg

DRUGS (36)
  1. DUPIXENT [Suspect]
     Active Substance: DUPILUMAB
     Indication: Asthma
     Dosage: 300 MG, QOW
     Route: 058
  2. NYSTATIN [Concomitant]
     Active Substance: NYSTATIN
  3. AZITHROMYCIN [Concomitant]
     Active Substance: AZITHROMYCIN
  4. PREDNISONE [Concomitant]
     Active Substance: PREDNISONE
  5. SODIUM CHLORIDE [Concomitant]
     Active Substance: SODIUM CHLORIDE
  6. LIDOCAINE [Concomitant]
     Active Substance: LIDOCAINE
  7. EPINEPHRINE [Concomitant]
     Active Substance: EPINEPHRINE
  8. DIPHENHYDRAMINE HYDROCHLORIDE [Concomitant]
     Active Substance: DIPHENHYDRAMINE HYDROCHLORIDE
  9. ACETAMINOPHEN [Concomitant]
     Active Substance: ACETAMINOPHEN
  10. GAMMAGARD LIQUID [Concomitant]
     Active Substance: HUMAN IMMUNOGLOBULIN G
  11. SODIUM CHLORIDE [Concomitant]
     Active Substance: SODIUM CHLORIDE
  12. BUDESONIDE [Concomitant]
     Active Substance: BUDESONIDE
  13. BREZTRI [Concomitant]
     Active Substance: BUDESONIDE\FORMOTEROL\GLYCOPYRROLATE
  14. VALSARTAN [Concomitant]
     Active Substance: VALSARTAN
  15. LEVSIN SL [Concomitant]
     Active Substance: HYOSCYAMINE SULFATE
  16. ALBUTEROL SULFATE [Concomitant]
     Active Substance: ALBUTEROL SULFATE
  17. VITAMIN D3 [Concomitant]
     Active Substance: CHOLECALCIFEROL
  18. NITROGLYCERIN [Concomitant]
     Active Substance: NITROGLYCERIN
  19. PREVACID [Concomitant]
     Active Substance: LANSOPRAZOLE
  20. SYNTHROID [Concomitant]
     Active Substance: LEVOTHYROXINE SODIUM
  21. GOODY^S EXTRA STRENGTH [Concomitant]
  22. VITAMINS NOS [Concomitant]
     Active Substance: VITAMINS
  23. FLUTICASONE PROPIONATE [Concomitant]
     Active Substance: FLUTICASONE PROPIONATE
  24. ROSUVASTATIN CALCIUM [Concomitant]
     Active Substance: ROSUVASTATIN CALCIUM
  25. SINGULAIR [Concomitant]
     Active Substance: MONTELUKAST SODIUM
  26. PROTONIX [Concomitant]
     Active Substance: PANTOPRAZOLE SODIUM
  27. MELOXICAM [Concomitant]
     Active Substance: MELOXICAM
  28. ROPINIROLE [Concomitant]
     Active Substance: ROPINIROLE
  29. ASTEPRO [Concomitant]
     Active Substance: AZELASTINE HYDROCHLORIDE
  30. ASPIRIN [Concomitant]
     Active Substance: ASPIRIN
  31. PANTOPRAZOLE SODIUM [Concomitant]
     Active Substance: PANTOPRAZOLE SODIUM
  32. CLINDAMYCIN [Concomitant]
     Active Substance: CLINDAMYCIN
  33. MUPIROCIN [Concomitant]
     Active Substance: MUPIROCIN
  34. LEVOTHYROXINE SODIUM [Concomitant]
     Active Substance: LEVOTHYROXINE SODIUM
  35. ROSUVASTATIN CALCIUM [Concomitant]
     Active Substance: ROSUVASTATIN CALCIUM
  36. ALBUTEROL SULFATE [Concomitant]
     Active Substance: ALBUTEROL SULFATE

REACTIONS (11)
  - Secondary immunodeficiency [Unknown]
  - Giant cell arteritis [Unknown]
  - Productive cough [Unknown]
  - Swelling [Unknown]
  - Infection [Unknown]
  - Biopsy artery [Unknown]
  - Wound infection [Unknown]
  - Headache [Unknown]
  - Ocular hyperaemia [Unknown]
  - Sinusitis bacterial [Unknown]
  - Eye irritation [Unknown]
